FAERS Safety Report 17113737 (Version 1)
Quarter: 2019Q4

REPORT INFORMATION
  Report Type: Other
  Country: FR (occurrence: FR)
  Receive Date: 20191205
  Receipt Date: 20191205
  Transmission Date: 20200122
  Serious: Yes (Death, Life-Threatening, Hospitalization, Other)
  Sender: FDA-Public Use
  Company Number: FR-MACLEODS PHARMACEUTICALS US LTD-MAC2018010964

PATIENT

DRUGS (2)
  1. CELECOXIB 200 MG [Suspect]
     Active Substance: CELECOXIB
     Indication: BACK PAIN
     Dosage: 200 MILLIGRAM, QD, 1 DOSAGE FORM TOTAL, CELEBREX (CELECOXIB)
     Route: 048
     Dates: start: 20170406, end: 20170406
  2. CELECOXIB 200 MG [Suspect]
     Active Substance: CELECOXIB
     Indication: BACK PAIN

REACTIONS (11)
  - Weight decreased [Not Recovered/Not Resolved]
  - Vanishing bile duct syndrome [Fatal]
  - Cholestasis [Not Recovered/Not Resolved]
  - Hepatitis cholestatic [Fatal]
  - Systemic inflammatory response syndrome [Not Recovered/Not Resolved]
  - Hepatitis [Not Recovered/Not Resolved]
  - Decreased appetite [Not Recovered/Not Resolved]
  - Malnutrition [Not Recovered/Not Resolved]
  - Febrile bone marrow aplasia [Not Recovered/Not Resolved]
  - Multiple organ dysfunction syndrome [Fatal]
  - Cholangitis infective [Fatal]

NARRATIVE: CASE EVENT DATE: 201704
